FAERS Safety Report 14475640 (Version 1)
Quarter: 2018Q1

REPORT INFORMATION
  Report Type: Spontaneous
  Country: SK (occurrence: SK)
  Receive Date: 20180201
  Receipt Date: 20180201
  Transmission Date: 20180509
  Serious: Yes (Other)
  Sender: FDA-Public Use
  Company Number: SK-009507513-1801SVK012975

PATIENT
  Sex: Male

DRUGS (20)
  1. LINEZOLID. [Suspect]
     Active Substance: LINEZOLID
     Indication: STAPHYLOCOCCAL INFECTION
  2. LINEZOLID. [Suspect]
     Active Substance: LINEZOLID
     Indication: SEPTIC SHOCK
  3. ANIDULAFUNGIN [Suspect]
     Active Substance: ANIDULAFUNGIN
     Indication: ORGAN FAILURE
  4. ANIDULAFUNGIN [Suspect]
     Active Substance: ANIDULAFUNGIN
     Indication: STAPHYLOCOCCAL INFECTION
     Dosage: UNK
  5. VORICONAZOLE. [Suspect]
     Active Substance: VORICONAZOLE
     Indication: BRONCHOPULMONARY ASPERGILLOSIS
  6. LINEZOLID. [Suspect]
     Active Substance: LINEZOLID
     Indication: ORGAN FAILURE
  7. CIPROFLOXACIN. [Suspect]
     Active Substance: CIPROFLOXACIN
     Indication: ORGAN FAILURE
  8. MEROPENEM. [Suspect]
     Active Substance: MEROPENEM
     Indication: STAPHYLOCOCCAL INFECTION
     Dosage: UNK
  9. MEROPENEM. [Suspect]
     Active Substance: MEROPENEM
     Indication: SEPTIC SHOCK
  10. FLUDARABINE PHOSPHATE. [Concomitant]
     Active Substance: FLUDARABINE PHOSPHATE
     Indication: ACUTE LYMPHOCYTIC LEUKAEMIA
     Dosage: UNK
  11. CIPROFLOXACIN. [Suspect]
     Active Substance: CIPROFLOXACIN
     Indication: STAPHYLOCOCCAL INFECTION
     Dosage: UNK
  12. TYGACIL [Suspect]
     Active Substance: TIGECYCLINE
     Indication: INTERSTITIAL LUNG DISEASE
  13. POSACONAZOLE [Suspect]
     Active Substance: POSACONAZOLE
     Indication: INTERSTITIAL LUNG DISEASE
  14. CASPOFUNGIN ACETATE. [Suspect]
     Active Substance: CASPOFUNGIN ACETATE
     Indication: INTERSTITIAL LUNG DISEASE
  15. MEROPENEM. [Suspect]
     Active Substance: MEROPENEM
     Indication: ORGAN FAILURE
  16. CIPROFLOXACIN. [Suspect]
     Active Substance: CIPROFLOXACIN
     Indication: SEPTIC SHOCK
  17. CYTARABINE. [Suspect]
     Active Substance: CYTARABINE
     Indication: ACUTE LYMPHOCYTIC LEUKAEMIA
  18. GRANULOCYTE COLONY STIMULATING FACTOR (UNSPECIFIED) [Concomitant]
     Active Substance: FILGRASTIM
     Indication: ACUTE LYMPHOCYTIC LEUKAEMIA
     Dosage: UNK
  19. ANIDULAFUNGIN [Suspect]
     Active Substance: ANIDULAFUNGIN
     Indication: SEPTIC SHOCK
  20. IDARUBICIN HYDROCHLORIDE. [Concomitant]
     Active Substance: IDARUBICIN HYDROCHLORIDE
     Indication: ACUTE LYMPHOCYTIC LEUKAEMIA

REACTIONS (9)
  - Respiratory failure [Unknown]
  - Thrombosis [Unknown]
  - Hypogonadism [Unknown]
  - Sepsis [Unknown]
  - Generalised oedema [Unknown]
  - Anuria [Unknown]
  - Cellulitis [Unknown]
  - Bronchopulmonary aspergillosis [Unknown]
  - Bacteraemia [Unknown]
